FAERS Safety Report 25233029 (Version 3)
Quarter: 2025Q3

REPORT INFORMATION
  Report Type: Report from Study
  Country: CA (occurrence: CA)
  Receive Date: 20250424
  Receipt Date: 20250827
  Transmission Date: 20251021
  Serious: Yes (Other)
  Sender: SAMSUNG BIOEPIS
  Company Number: CA-SAMSUNG BIOEPIS-SB-2025-13842

PATIENT
  Sex: Male

DRUGS (1)
  1. RENFLEXIS [Suspect]
     Active Substance: INFLIXIMAB-ABDA
     Indication: Colitis ulcerative
     Route: 042
     Dates: start: 20241122

REACTIONS (9)
  - Pancreatitis [Unknown]
  - Colitis [Unknown]
  - Psoriasis [Unknown]
  - Frequent bowel movements [Unknown]
  - Decreased appetite [Unknown]
  - Illness [Unknown]
  - Malaise [Unknown]
  - Gastrointestinal disorder [Unknown]
  - Therapeutic response shortened [Unknown]
